FAERS Safety Report 8818805 (Version 1)
Quarter: 2012Q4

REPORT INFORMATION
  Report Type: Spontaneous
  Country: US (occurrence: None)
  Receive Date: 20121004
  Receipt Date: 20121004
  Transmission Date: 20130627
  Serious: Yes (Life-Threatening, Hospitalization, Disabling)
  Sender: FDA-Public Use
  Company Number: None

PATIENT
  Sex: Female
  Weight: 55.79 kg

DRUGS (1)
  1. MICRONASE [Suspect]
     Indication: DIABETES
     Route: 048
     Dates: start: 1980, end: 2010

REACTIONS (14)
  - Asthenia [None]
  - Decreased appetite [None]
  - Weight decreased [None]
  - Ocular icterus [None]
  - Yellow skin [None]
  - Chromaturia [None]
  - Swelling [None]
  - Faeces pale [None]
  - Blood bilirubin increased [None]
  - Hepatic enzyme increased [None]
  - Liver injury [None]
  - Spleen disorder [None]
  - White blood cell count decreased [None]
  - Platelet count decreased [None]
